FAERS Safety Report 5675148-4 (Version None)
Quarter: 2008Q1

REPORT INFORMATION
  Report Type: 
  Country: None (occurrence: None)
  Receive Date: 20080320
  Receipt Date: 20080310
  Transmission Date: 20080703
  Serious: Yes (Hospitalization)
  Sender: FDA-Public Use
  Company Number: ZA-ABBOTT-08P-163-0441876-00

PATIENT
  Age: 9 Year
  Sex: Female

DRUGS (4)
  1. VALPROATE SODIUM [Suspect]
     Indication: CONVULSION
  2. VALPROATE SODIUM [Suspect]
     Dates: start: 19790501, end: 19790701
  3. VALPROATE SODIUM [Suspect]
     Dates: start: 19790701, end: 19790801
  4. VALPROATE SODIUM [Suspect]
     Dates: start: 19790801, end: 19791001

REACTIONS (1)
  - APLASIA PURE RED CELL [None]
